FAERS Safety Report 9951513 (Version 1)
Quarter: 2014Q1

REPORT INFORMATION
  Report Type: Report from Study
  Country: US (occurrence: US)
  Receive Date: 20140304
  Receipt Date: 20140304
  Transmission Date: 20141002
  Serious: No
  Sender: FDA-Public Use
  Company Number: US-ABBVIE-13P-163-1070393-00

PATIENT
  Age: 68 Year
  Sex: Male

DRUGS (3)
  1. HUMIRA [Suspect]
     Indication: CROHN^S DISEASE
     Route: 058
     Dates: start: 20121112, end: 201303
  2. SULFADIAZINE [Concomitant]
     Indication: PRODUCT USED FOR UNKNOWN INDICATION
  3. TENORMIN [Concomitant]
     Indication: PRODUCT USED FOR UNKNOWN INDICATION

REACTIONS (3)
  - Fatigue [Recovering/Resolving]
  - Drug ineffective [Unknown]
  - Frequent bowel movements [Unknown]
